FAERS Safety Report 7609415-1 (Version None)
Quarter: 2011Q3

REPORT INFORMATION
  Report Type: 
  Country: None (occurrence: None)
  Receive Date: 20110713
  Receipt Date: 20110713
  Transmission Date: 20111222
  Serious: Yes (Other)
  Sender: FDA-Public Use
  Company Number: None

PATIENT
  Age: 27 Year
  Sex: Female
  Weight: 56.6996 kg

DRUGS (2)
  1. ALCAFTADINE OPHTHALMIC 0.25% ALLERGAN [Suspect]
     Indication: MULTIPLE ALLERGIES
     Dosage: ONE DROP EACH EYE ONCE A DAY OPHTHALMIC
     Route: 047
     Dates: start: 20110509, end: 20110606
  2. ALCAFTADINE OPHTHALMIC 0.25% ALLERGAN [Suspect]
     Indication: MULTIPLE ALLERGIES
     Dosage: ONE DROP EACH EYE ONCE A DAY OPHTHALMIC
     Route: 047
     Dates: start: 20110712, end: 20110719

REACTIONS (9)
  - EYE INFECTION [None]
  - LACRIMATION INCREASED [None]
  - ULCERATIVE KERATITIS [None]
  - EYE PRURITUS [None]
  - EYE SWELLING [None]
  - VISUAL ACUITY REDUCED [None]
  - HEADACHE [None]
  - OCULAR HYPERAEMIA [None]
  - INFLAMMATION [None]
